FAERS Safety Report 5028693-9 (Version None)
Quarter: 2006Q2

REPORT INFORMATION
  Report Type: 
  Country: None (occurrence: None)
  Receive Date: 20060619
  Receipt Date: 20060608
  Transmission Date: 20061013
  Serious: Yes (Hospitalization)
  Sender: FDA-Public Use
  Company Number: US-JNJFOC-20060602516

PATIENT
  Sex: Female
  Weight: 63.6 kg

DRUGS (5)
  1. ORTHO EVRA [Suspect]
     Indication: MENSTRUATION IRREGULAR
     Route: 062
  2. CYCLESSA [Suspect]
     Indication: MENSTRUAL DISORDER
     Route: 048
  3. ALESSE [Suspect]
     Route: 048
  4. ALESSE [Suspect]
     Indication: DRUG USE FOR UNKNOWN INDICATION
     Route: 048
  5. FERROUS FURAMATE [Concomitant]

REACTIONS (5)
  - DEPRESSION [None]
  - MENORRHAGIA [None]
  - SINUS HEADACHE [None]
  - TRANSIENT ISCHAEMIC ATTACK [None]
  - UTERINE LEIOMYOMA [None]
